FAERS Safety Report 4776736-X (Version None)
Quarter: 2005Q3

REPORT INFORMATION
  Report Type: 
  Country: None (occurrence: None)
  Receive Date: 20050922
  Receipt Date: 20050922
  Transmission Date: 20060218
  Serious: Yes (Hospitalization, Other)
  Sender: FDA-Public Use
  Company Number: None

PATIENT
  Sex: Male
  Weight: 77 kg

DRUGS (3)
  1. CYTARABINE [Suspect]
     Indication: ACUTE MYELOID LEUKAEMIA
     Dosage: SEE IMAGE
     Route: 042
     Dates: start: 20050825
  2. DAUNOMYCIN [Suspect]
     Dosage: SEE IMAGE
     Route: 042
     Dates: start: 20050825
  3. VP-16-213 [Suspect]
     Dosage: SEE IMAGE
     Route: 042
     Dates: start: 20050825

REACTIONS (2)
  - ABDOMINAL PAIN [None]
  - CLOSTRIDIUM COLITIS [None]
